FAERS Safety Report 9383769 (Version 2)
Quarter: 2013Q3

REPORT INFORMATION
  Report Type: Spontaneous
  Country: US (occurrence: US)
  Receive Date: 20130704
  Receipt Date: 20130711
  Transmission Date: 20140515
  Serious: Yes (Hospitalization)
  Sender: FDA-Public Use
  Company Number: US-009507513-1307USA002054

PATIENT
  Age: 22 Year
  Sex: Female
  Weight: 81.63 kg

DRUGS (1)
  1. IMPLANON [Suspect]
     Indication: CONTRACEPTION
     Dosage: UNK
     Route: 059
     Dates: start: 20101122

REACTIONS (5)
  - Hypoaesthesia [Unknown]
  - Menstruation irregular [Unknown]
  - Headache [Unknown]
  - Coital bleeding [Unknown]
  - Feeling abnormal [Unknown]
